FAERS Safety Report 9550028 (Version 1)
Quarter: 2013Q3

REPORT INFORMATION
  Report Type: Spontaneous
  Country: CN (occurrence: CN)
  Receive Date: 20130924
  Receipt Date: 20130924
  Transmission Date: 20140515
  Serious: Yes (Hospitalization)
  Sender: FDA-Public Use
  Company Number: CN-GLAXOSMITHKLINE-B0924602A

PATIENT
  Age: 50 Year
  Sex: Male

DRUGS (1)
  1. ZINACEF [Suspect]
     Indication: INFECTION PROPHYLAXIS
     Dosage: 1500MG PER DAY
     Route: 042
     Dates: start: 20130917

REACTIONS (2)
  - Cardiac arrest [Recovering/Resolving]
  - Blood pressure decreased [Unknown]
